FAERS Safety Report 5597510-0 (Version None)
Quarter: 2008Q1

REPORT INFORMATION
  Report Type: 
  Country: None (occurrence: None)
  Receive Date: 20080116
  Receipt Date: 20080107
  Transmission Date: 20080703
  Serious: Yes (Other)
  Sender: FDA-Public Use
  Company Number: 2007BI026384

PATIENT
  Age: 46 Year
  Sex: Female

DRUGS (2)
  1. NATALIZUMAB [Suspect]
     Indication: MULTIPLE SCLEROSIS
     Dosage: 300 MG QM IV
     Route: 042
     Dates: start: 20070919
  2. AVONEX [Concomitant]

REACTIONS (3)
  - INFECTIOUS MONONUCLEOSIS [None]
  - SPLENOMEGALY [None]
  - THROMBOCYTOPENIA [None]
